FAERS Safety Report 7878276-8 (Version None)
Quarter: 2011Q4

REPORT INFORMATION
  Report Type: 
  Country: None (occurrence: None)
  Receive Date: 20111031
  Receipt Date: 20111016
  Transmission Date: 20120403
  Serious: Yes (Other)
  Sender: FDA-Public Use
  Company Number: 2011SP048918

PATIENT
  Sex: Female

DRUGS (7)
  1. INTRON A [Suspect]
     Indication: MALIGNANT MELANOMA
     Dosage: UNK;UNK
     Dates: start: 20111016
  2. INTRON A [Suspect]
     Indication: MALIGNANT MELANOMA
     Dosage: 40 MIU;UNK;IV, 30 MIU;UNK;IV, 22.6 MIU;TIW;IV
     Route: 042
     Dates: start: 20111003
  3. INTRON A [Suspect]
     Indication: MALIGNANT MELANOMA
     Dosage: 40 MIU;UNK;IV, 30 MIU;UNK;IV, 22.6 MIU;TIW;IV
     Route: 042
     Dates: start: 20110829
  4. ZOFRAN [Concomitant]
  5. ACETAMINOPHEN [Concomitant]
  6. MICARDIS [Concomitant]
  7. ANTACID [Concomitant]

REACTIONS (7)
  - FATIGUE [None]
  - NAUSEA [None]
  - LIVER FUNCTION TEST ABNORMAL [None]
  - CARDIAC FLUTTER [None]
  - CHILLS [None]
  - HEADACHE [None]
  - BODY TEMPERATURE INCREASED [None]
